FAERS Safety Report 5780332-5 (Version None)
Quarter: 2008Q2

REPORT INFORMATION
  Report Type: 
  Country: None (occurrence: None)
  Receive Date: 20080620
  Receipt Date: 20080616
  Transmission Date: 20081010
  Serious: Yes (Other)
  Sender: FDA-Public Use
  Company Number: A0733981A

PATIENT
  Age: 3 Year
  Sex: Male

DRUGS (2)
  1. ADVAIR DISKUS 100/50 [Suspect]
     Route: 055
  2. STEROID [Suspect]
     Indication: WHEEZING
     Route: 048

REACTIONS (5)
  - AFFECTIVE DISORDER [None]
  - AGGRESSION [None]
  - DECREASED APPETITE [None]
  - EMOTIONAL DISORDER [None]
  - PERSONALITY CHANGE [None]
